FAERS Safety Report 6151938-9 (Version None)
Quarter: 2009Q2

REPORT INFORMATION
  Report Type: 
  Country: None (occurrence: None)
  Receive Date: 20090410
  Receipt Date: 20090313
  Transmission Date: 20091009
  Serious: No
  Sender: FDA-Public Use
  Company Number: CA-B.I. PHARMACEUTICALS,INC./RIDGEFIELD-2009-BP-01020BP

PATIENT
  Sex: Female

DRUGS (6)
  1. MIRAPEX [Suspect]
     Indication: PERIODIC LIMB MOVEMENT DISORDER
     Route: 048
     Dates: start: 20050512, end: 20080427
  2. SEROQUEL [Concomitant]
     Indication: ANXIETY
     Route: 048
  3. EFFEXOR [Concomitant]
     Indication: DEPRESSION
     Route: 048
  4. CELEXA [Concomitant]
     Indication: DEPRESSION
     Route: 048
     Dates: start: 20070401, end: 20071001
  5. CLONAZEPAM [Concomitant]
     Indication: ANXIETY
     Dosage: .5MG
     Route: 048
     Dates: start: 20071101, end: 20080401
  6. GABAPENTIN [Concomitant]
     Indication: MOVEMENT DISORDER
     Route: 048

REACTIONS (10)
  - AFFECT LABILITY [None]
  - COMPULSIVE SEXUAL BEHAVIOUR [None]
  - COMPULSIVE SHOPPING [None]
  - HYPERPHAGIA [None]
  - IMPULSIVE BEHAVIOUR [None]
  - MEMORY IMPAIRMENT [None]
  - OBSESSIVE-COMPULSIVE DISORDER [None]
  - SLEEP DISORDER [None]
  - SOMNOLENCE [None]
  - SUICIDAL IDEATION [None]
